FAERS Safety Report 19744938 (Version 1)
Quarter: 2021Q3

REPORT INFORMATION
  Report Type: Spontaneous
  Country: US (occurrence: US)
  Receive Date: 20210823
  Receipt Date: 20210823
  Transmission Date: 20211014
  Serious: No
  Sender: FDA-Public Use
  Company Number: None

PATIENT

DRUGS (1)
  1. OCTREOTIDE ACETATE. [Suspect]
     Active Substance: OCTREOTIDE ACETATE
     Dosage: ?          OTHER DOSE:100 MCG/ML;?
     Route: 030

REACTIONS (3)
  - Wrong technique in product usage process [None]
  - Device safety feature issue [None]
  - Injury associated with device [None]
